FAERS Safety Report 6885087-9 (Version None)
Quarter: 2010Q3

REPORT INFORMATION
  Report Type: 
  Country: None (occurrence: None)
  Receive Date: 20100729
  Receipt Date: 20071116
  Transmission Date: 20110219
  Serious: No
  Sender: FDA-Public Use
  Company Number: US-PFIZER INC-2007097512

PATIENT
  Sex: Male

DRUGS (2)
  1. CELEBREX [Suspect]
     Indication: GASTRITIS
     Dates: start: 20071115
  2. CELEBREX [Suspect]
     Indication: PAIN

REACTIONS (2)
  - PRURITUS [None]
  - RASH MACULAR [None]
